FAERS Safety Report 8613577-7 (Version None)
Quarter: 2012Q3

REPORT INFORMATION
  Report Type: 
  Country: None (occurrence: None)
  Receive Date: 20120823
  Receipt Date: 20120815
  Transmission Date: 20120928
  Serious: Yes (Hospitalization)
  Sender: FDA-Public Use
  Company Number: DE-AMGEN-DEUCT2012052716

PATIENT
  Age: 69 Year
  Sex: Female

DRUGS (9)
  1. ETANERCEPT [Suspect]
     Indication: PRODUCT USED FOR UNKNOWN INDICATION
     Dosage: UNK
     Dates: start: 20110901, end: 20111001
  2. CERTOLIZUMAB PEGOL [Concomitant]
     Dosage: UNK
     Dates: start: 20110501, end: 20110701
  3. HYDROCHLOROTHIAZIDE [Concomitant]
     Dosage: 25 MG (1/2-0-0)
  4. METHOTREXATE SODIUM [Suspect]
     Dosage: 7.5 MG, WEEKLY
     Route: 051
     Dates: start: 20020801
  5. METOPROLOL SUCCINATE [Concomitant]
     Dosage: 95 MG (1/2-0-0)
  6. RAMIPRIL [Concomitant]
     Dosage: 5 MG (1-0-1)
  7. LEXOTANIL [Concomitant]
     Dosage: (0-0-1/2)
  8. VOLTAREN [Concomitant]
     Dosage: UNK, AS NEEDED
  9. LEVOTHYROXINE SODIUM [Concomitant]
     Dosage: 88 (1-0-0)

REACTIONS (1)
  - ULCERATIVE KERATITIS [None]
